FAERS Safety Report 8257905-3 (Version None)
Quarter: 2012Q2

REPORT INFORMATION
  Report Type: 
  Country: None (occurrence: None)
  Receive Date: 20120404
  Receipt Date: 20120329
  Transmission Date: 20120825
  Serious: Yes (Other)
  Sender: FDA-Public Use
  Company Number: US-PFIZER INC-2012080968

PATIENT
  Sex: Female
  Weight: 68 kg

DRUGS (4)
  1. NEURONTIN [Suspect]
     Indication: INFLAMMATION
     Dosage: 300 MG, 1X/DAY
     Route: 048
     Dates: start: 20120319, end: 20120326
  2. NEURONTIN [Suspect]
     Indication: NEURALGIA
     Dosage: 100 MG, 1X/DAY
     Route: 048
     Dates: start: 20120306, end: 20120319
  3. NEURONTIN [Suspect]
     Indication: PAIN IN EXTREMITY
     Dosage: 400 MG, 1X/DAY
     Route: 048
     Dates: start: 20120326
  4. TOPROL-XL [Concomitant]
     Indication: HYPERTENSION
     Dosage: UNK

REACTIONS (3)
  - DRUG EFFECT DECREASED [None]
  - MIDDLE INSOMNIA [None]
  - PAIN [None]
